FAERS Safety Report 6769617-3 (Version None)
Quarter: 2010Q2

REPORT INFORMATION
  Report Type: 
  Country: None (occurrence: None)
  Receive Date: 20100615
  Receipt Date: 20100603
  Transmission Date: 20101027
  Serious: Yes (Other)
  Sender: FDA-Public Use
  Company Number: JP-PFIZER INC-2010053566

PATIENT
  Age: 66 Year
  Sex: Male
  Weight: 68 kg

DRUGS (18)
  1. ZYVOX [Suspect]
     Indication: STAPHYLOCOCCAL SEPSIS
     Dosage: 600 MG, 2X/DAY
     Route: 042
     Dates: start: 20100329, end: 20100411
  2. ZYVOX [Suspect]
     Dosage: 1200 MG DAILY
     Route: 048
     Dates: start: 20100412, end: 20100416
  3. MICAFUNGIN SODIUM [Concomitant]
     Indication: CANDIDA SEPSIS
     Dosage: 150 MG, 1X/DAY
     Route: 042
     Dates: start: 20100413, end: 20100416
  4. MICAFUNGIN SODIUM [Concomitant]
     Dosage: 300 MG, 1X/DAY
     Route: 042
     Dates: start: 20100417, end: 20100430
  5. ARTIST [Concomitant]
     Indication: ANGINA PECTORIS
     Dosage: 5 MG, 1X/DAY
     Route: 048
     Dates: start: 20100313, end: 20100318
  6. ARTIST [Concomitant]
     Dosage: 10 MG, 1X/DAY
     Route: 048
     Dates: start: 20100319, end: 20100326
  7. ARTIST [Concomitant]
     Dosage: 2.5 MG, 1X/DAY
     Route: 048
     Dates: start: 20100414, end: 20100417
  8. FAMOTIDINE [Concomitant]
     Dosage: 20 MG, 2X/DAY
     Route: 048
     Dates: start: 20100318, end: 20100510
  9. LAC B GRANULAR POWDER [Concomitant]
     Dosage: 1 G, 3X/DAY
     Route: 048
     Dates: start: 20100310, end: 20100428
  10. BAYASPIRIN [Concomitant]
     Dosage: 200 MG, 1X/DAY
     Route: 048
     Dates: start: 20100310, end: 20100510
  11. DAIKENTYUTO [Concomitant]
     Dosage: 2.5 G, 3X/DAY
     Route: 048
     Dates: start: 20100311, end: 20100428
  12. MAGNESIUM [Concomitant]
     Indication: CONSTIPATION
     Dosage: 330 MG, 3X/DAY
     Route: 048
     Dates: start: 20100310, end: 20100528
  13. WARFARIN [Concomitant]
     Dosage: UNK
     Route: 048
     Dates: start: 20100310, end: 20100510
  14. VASOLAN [Concomitant]
     Indication: ANGINA PECTORIS
     Dosage: 5 MG, 1X/DAY
     Route: 042
     Dates: start: 20100417, end: 20100417
  15. PRIMPERAN [Concomitant]
     Dosage: 20 MG, 1X/DAY
     Route: 042
     Dates: start: 20100326, end: 20100510
  16. MAROPHEN [Concomitant]
     Indication: INFECTION
     Dosage: 1 G, 3X/DAY
     Dates: start: 20100326, end: 20100328
  17. MAROPHEN [Concomitant]
     Dosage: 1 G, 3X/DAY
     Dates: start: 20010224, end: 20100411
  18. HEP-FLUSH [Concomitant]
     Dosage: UNK
     Dates: start: 20100411, end: 20100411

REACTIONS (2)
  - VENTRICULAR EXTRASYSTOLES [None]
  - VISUAL FIELD DEFECT [None]
